FAERS Safety Report 25362482 (Version 1)
Quarter: 2025Q2

REPORT INFORMATION
  Report Type: Spontaneous
  Country: US (occurrence: None)
  Receive Date: 20250524
  Receipt Date: 20250524
  Transmission Date: 20250716
  Serious: Yes (Death, Life-Threatening, Hospitalization, Disabling)
  Sender: FDA-CTU
  Company Number: None

PATIENT
  Age: 39 Year
  Sex: Female
  Weight: 99 kg

DRUGS (8)
  1. ERYTHROMYCIN [Suspect]
     Active Substance: ERYTHROMYCIN
     Indication: Impaired gastric emptying
     Dosage: OTHER QUANTITY : 60 TABLET(S);?FREQUENCY : 3 TIMES A DAY;?
     Route: 048
     Dates: start: 20241114, end: 20241116
  2. Albuterol fast acting medicine [Concomitant]
  3. VENLAFAXINE [Concomitant]
     Active Substance: VENLAFAXINE HYDROCHLORIDE
  4. ESTRADIOL [Concomitant]
     Active Substance: ESTRADIOL
  5. BUSPIRONE [Concomitant]
     Active Substance: BUSPIRONE HYDROCHLORIDE
  6. METOPROLOL TARTRATE [Concomitant]
     Active Substance: METOPROLOL TARTRATE
  7. ASPIRIN [Concomitant]
     Active Substance: ASPIRIN
  8. DRAMAMINE [Concomitant]
     Active Substance: DIMENHYDRINATE

REACTIONS (3)
  - Cardiac arrest [None]
  - Brain death [None]
  - Arrhythmia [None]

NARRATIVE: CASE EVENT DATE: 20241116
